FAERS Safety Report 12997604 (Version 4)
Quarter: 2016Q4

REPORT INFORMATION
  Report Type: Spontaneous
  Country: US (occurrence: US)
  Receive Date: 20161205
  Receipt Date: 20161230
  Transmission Date: 20170207
  Serious: No
  Sender: FDA-Public Use
  Company Number: PHEH2016US031345

PATIENT
  Sex: Male

DRUGS (2)
  1. AFINITOR [Suspect]
     Active Substance: EVEROLIMUS
     Indication: RENAL CANCER
     Route: 065
  2. LENVATINIB [Suspect]
     Active Substance: LENVATINIB
     Indication: RENAL CANCER
     Dosage: 18 MG, QD
     Route: 048
     Dates: start: 20161123

REACTIONS (9)
  - Tenderness [Not Recovered/Not Resolved]
  - Blood triglycerides increased [Unknown]
  - Epistaxis [Unknown]
  - Pruritus [Unknown]
  - Blood cholesterol increased [Unknown]
  - Fatigue [Unknown]
  - Oral mucosal erythema [Not Recovered/Not Resolved]
  - Glycosylated haemoglobin increased [Unknown]
  - Hypertension [Unknown]
